FAERS Safety Report 5401176-X (Version None)
Quarter: 2007Q3

REPORT INFORMATION
  Report Type: 
  Country: None (occurrence: None)
  Receive Date: 20070731
  Receipt Date: 20070723
  Transmission Date: 20080115
  Serious: Yes (Other)
  Sender: FDA-Public Use
  Company Number: PHEH2007US10270

PATIENT
  Sex: Female

DRUGS (5)
  1. ZOMETA [Suspect]
     Indication: MULTIPLE MYELOMA
     Dates: start: 20030401, end: 20030701
  2. ZOMETA [Suspect]
     Dosage: MONTHLY
     Dates: start: 20031101
  3. VINCRISTINE + ADRIAMYCIN + DEXAMETHASONE [Concomitant]
     Dosage: 4 CYCLES
     Dates: start: 20030201, end: 20030601
  4. PREDNISONE [Suspect]
     Dosage: UNK, UNK
     Dates: start: 20030701
  5. TOPOTECAN [Concomitant]

REACTIONS (8)
  - BONE INFARCTION [None]
  - DENTAL TREATMENT [None]
  - GAIT DISTURBANCE [None]
  - OSTEONECROSIS [None]
  - PAIN [None]
  - PAIN IN EXTREMITY [None]
  - ROTATOR CUFF SYNDROME [None]
  - UPPER LIMB FRACTURE [None]
